FAERS Safety Report 9980359 (Version 2)
Quarter: 2014Q2

REPORT INFORMATION
  Report Type: Spontaneous
  Country: FR (occurrence: FR)
  Receive Date: 20140307
  Receipt Date: 20140410
  Transmission Date: 20141212
  Serious: Yes (Other)
  Sender: FDA-Public Use
  Company Number: FR-ROCHE-1355557

PATIENT
  Age: 59 Year
  Sex: Male

DRUGS (4)
  1. CEFTRIAXONE [Suspect]
     Indication: BRAIN ABSCESS
     Route: 042
  2. CEFTRIAXONE [Suspect]
     Route: 030
  3. PANTOPRAZOLE [Concomitant]
     Route: 048
  4. ENOXAPARIN SODIUM [Concomitant]
     Dosage: PER DAY
     Route: 058

REACTIONS (1)
  - Hoigne^s syndrome [Recovered/Resolved]
